FAERS Safety Report 6845677-6 (Version None)
Quarter: 2010Q3

REPORT INFORMATION
  Report Type: 
  Country: None (occurrence: None)
  Receive Date: 20100715
  Receipt Date: 20070827
  Transmission Date: 20110219
  Serious: No
  Sender: FDA-Public Use
  Company Number: US-PFIZER INC-2007071998

PATIENT
  Sex: Female
  Weight: 63.5 kg

DRUGS (4)
  1. CHANTIX [Suspect]
     Indication: SMOKING CESSATION THERAPY
     Route: 048
     Dates: start: 20070531
  2. SYNTHROID [Concomitant]
  3. MOBIC [Concomitant]
  4. ESTRACE [Concomitant]
     Dates: start: 19990101

REACTIONS (5)
  - FEELING ABNORMAL [None]
  - HOT FLUSH [None]
  - MOOD SWINGS [None]
  - NIGHT SWEATS [None]
  - THINKING ABNORMAL [None]
